FAERS Safety Report 18059185 (Version 1)
Quarter: 2020Q3

REPORT INFORMATION
  Report Type: Spontaneous
  Country: US (occurrence: US)
  Receive Date: 20200722
  Receipt Date: 20200722
  Transmission Date: 20201103
  Serious: No
  Sender: FDA-Public Use
  Company Number: None

PATIENT
  Age: 82 Year
  Sex: Female

DRUGS (15)
  1. FEXOFENADINE/PSEUDOEPHEDR [Concomitant]
  2. IBANDRONATE SODIUM. [Concomitant]
     Active Substance: IBANDRONATE SODIUM
  3. CYCLOBENZAPRINE HCL ER [Concomitant]
  4. ASCORBIC ACID. [Concomitant]
     Active Substance: ASCORBIC ACID
  5. TURMERIC [Concomitant]
     Active Substance: HERBALS\TURMERIC
  6. PROBIOTIC+COLOSTRUM [Concomitant]
  7. ACETAMINOPHEN. [Concomitant]
     Active Substance: ACETAMINOPHEN
  8. CHOLECALCIFEROL [Concomitant]
     Active Substance: CHOLECALCIFEROL
  9. MULTI ADULT GUMMIES [Concomitant]
  10. TRIAMTERENE POTASSIUM CHLORATE [Concomitant]
  11. AMMONIUM LACTATE. [Concomitant]
     Active Substance: AMMONIUM LACTATE
  12. REPATHA [Suspect]
     Active Substance: EVOLOCUMAB
     Indication: HYPERLIPIDAEMIA
     Route: 058
     Dates: start: 20200129
  13. FOLIC ACID. [Concomitant]
     Active Substance: FOLIC ACID
  14. CALCIUM CARBONATE. [Concomitant]
     Active Substance: CALCIUM CARBONATE
  15. ASPIRIN. [Concomitant]
     Active Substance: ASPIRIN

REACTIONS (2)
  - Bladder cancer [None]
  - Surgery [None]

NARRATIVE: CASE EVENT DATE: 20200721
